FAERS Safety Report 5612469-5 (Version None)
Quarter: 2008Q1

REPORT INFORMATION
  Report Type: 
  Country: None (occurrence: None)
  Receive Date: 20080204
  Receipt Date: 20080122
  Transmission Date: 20080703
  Serious: Yes (Death)
  Sender: FDA-Public Use
  Company Number: JP-ROCHE-522800

PATIENT
  Sex: Female

DRUGS (2)
  1. PEGASYS [Suspect]
     Route: 058
     Dates: start: 20070914, end: 20071019
  2. COPEGUS [Suspect]
     Route: 048
     Dates: start: 20070914, end: 20071019

REACTIONS (4)
  - ALANINE AMINOTRANSFERASE INCREASED [None]
  - ASPARTATE AMINOTRANSFERASE INCREASED [None]
  - CARDIAC FAILURE [None]
  - PULMONARY HYPERTENSION [None]
